FAERS Safety Report 20725123 (Version 3)
Quarter: 2023Q4

REPORT INFORMATION
  Report Type: Report from Study
  Country: US (occurrence: US)
  Receive Date: 20220419
  Receipt Date: 20231115
  Transmission Date: 20240110
  Serious: Yes (Other)
  Sender: FDA-Public Use
  Company Number: US-UCBSA-2022021440

PATIENT
  Age: 32 Year
  Sex: Male

DRUGS (2)
  1. BRIVARACETAM [Suspect]
     Active Substance: BRIVARACETAM
     Indication: Seizure
     Dosage: 1.5 TABLETS (100 MG) , 2X/DAY (BID)
     Dates: start: 20171108, end: 202204
  2. BRIVARACETAM [Suspect]
     Active Substance: BRIVARACETAM
     Dosage: 1.5 TABLETS (100 MG) , 2X/DAY (BID)

REACTIONS (5)
  - Seizure [Recovered/Resolved]
  - Product use issue [Unknown]
  - Overdose [Unknown]
  - Therapy interrupted [Unknown]
  - Product availability issue [Unknown]

NARRATIVE: CASE EVENT DATE: 20171108
